FAERS Safety Report 25644371 (Version 1)
Quarter: 2025Q3

REPORT INFORMATION
  Report Type: Report from Study
  Country: US (occurrence: US)
  Receive Date: 20250805
  Receipt Date: 20250805
  Transmission Date: 20251021
  Serious: Yes (Other)
  Sender: ALEXION PHARMACEUTICALS
  Company Number: US-AstraZeneca-2024A213164

PATIENT
  Age: 6 Year
  Sex: Male
  Weight: 19 kg

DRUGS (1)
  1. KOSELUGO [Suspect]
     Active Substance: SELUMETINIB
     Dosage: 30 MILLIGRAM, BID
     Dates: start: 20240216

REACTIONS (1)
  - Streptococcal infection [Unknown]
